FAERS Safety Report 16942602 (Version 2)
Quarter: 2019Q4

REPORT INFORMATION
  Report Type: Report from Study
  Country: US (occurrence: US)
  Receive Date: 20191021
  Receipt Date: 20191126
  Transmission Date: 20200122
  Serious: Yes (Hospitalization, Other)
  Sender: FDA-Public Use
  Company Number: US-ALNYLAM PHARMACEUTICALS, INC.-ALN-2019-000792

PATIENT
  Sex: Male

DRUGS (1)
  1. ONPATTRO [Suspect]
     Active Substance: PATISIRAN SODIUM
     Indication: HEREDITARY NEUROPATHIC AMYLOIDOSIS
     Dosage: UNK
     Route: 042
     Dates: start: 20181220

REACTIONS (8)
  - Hypotension [Unknown]
  - Sepsis [Unknown]
  - Malaise [Unknown]
  - Condition aggravated [Unknown]
  - Pneumonia [Unknown]
  - Urinary tract infection [Unknown]
  - Pyrexia [Unknown]
  - Infection [Unknown]
